FAERS Safety Report 11144466 (Version 11)
Quarter: 2016Q1

REPORT INFORMATION
  Report Type: Report from Study
  Country: BE (occurrence: BE)
  Receive Date: 20150526
  Receipt Date: 20160203
  Transmission Date: 20160525
  Serious: Yes (Death, Hospitalization, Other)
  Sender: FDA-Public Use
  Company Number: BE-ABBVIE-15P-013-1396366-00

PATIENT
  Sex: Male
  Weight: 61 kg

DRUGS (15)
  1. DUODOPA [Suspect]
     Active Substance: CARBIDOPA\LEVODOPA
     Dosage: AM: 7.5ML; CD: 4ML/H FOR 16HRS; ED: 2ML
     Route: 050
     Dates: start: 20150603, end: 20150615
  2. DUODOPA [Suspect]
     Active Substance: CARBIDOPA\LEVODOPA
     Dosage: AM: 7.5ML; CD: 4ML/H FOR 16HRS; ED: 2ML
     Route: 050
     Dates: start: 20150615
  3. FOLAVIT [Concomitant]
     Indication: PRODUCT USED FOR UNKNOWN INDICATION
  4. DUODOPA [Suspect]
     Active Substance: CARBIDOPA\LEVODOPA
     Dosage: UNKNOWN
     Route: 050
     Dates: start: 20150518, end: 20150521
  5. DUODOPA [Suspect]
     Active Substance: CARBIDOPA\LEVODOPA
     Dosage: AM DOSE=7.5ML, CD=3.7ML/H FOR 16HRS, ED=1.5ML
     Route: 050
     Dates: start: 20141121, end: 20141121
  6. DUODOPA [Suspect]
     Active Substance: CARBIDOPA\LEVODOPA
     Dosage: AM = 7.5 ML, CD = 3.7 ML/H DURING 16H, ED = 2 ML
     Route: 050
     Dates: start: 20150522, end: 20150603
  7. CRESTOR [Concomitant]
     Active Substance: ROSUVASTATIN CALCIUM
     Indication: PRODUCT USED FOR UNKNOWN INDICATION
  8. REMERGON [Concomitant]
     Active Substance: MIRTAZAPINE
     Indication: PRODUCT USED FOR UNKNOWN INDICATION
     Route: 048
     Dates: start: 201509
  9. DUODOPA [Suspect]
     Active Substance: CARBIDOPA\LEVODOPA
     Indication: PARKINSON^S DISEASE
     Route: 050
     Dates: start: 20141117, end: 20141121
  10. EMCONCOR [Concomitant]
     Active Substance: BISOPROLOL FUMARATE
     Indication: PRODUCT USED FOR UNKNOWN INDICATION
  11. PANTOPRAZOL [Concomitant]
     Active Substance: PANTOPRAZOLE SODIUM
     Indication: PRODUCT USED FOR UNKNOWN INDICATION
  12. STALEVO [Concomitant]
     Active Substance: CARBIDOPA\ENTACAPONE\LEVODOPA
     Indication: PARKINSON^S DISEASE
     Dosage: FORM STRENGTH: 150MG/37.5MG/200MG; UNIT DOSE: 1 TABLET
  13. ASAFLOW [Concomitant]
     Active Substance: ASPIRIN
     Indication: PRODUCT USED FOR UNKNOWN INDICATION
  14. DUODOPA [Suspect]
     Active Substance: CARBIDOPA\LEVODOPA
     Dosage: AM = 7.5 ML, CD = 3.7 ML/H DURING 16H, ED = 1.5 ML
     Route: 050
     Dates: start: 20150521, end: 20150522
  15. EMCONCOR [Concomitant]
     Active Substance: BISOPROLOL FUMARATE
     Route: 048

REACTIONS (15)
  - Eye disorder [Unknown]
  - Oncologic complication [Fatal]
  - Metastases to liver [Fatal]
  - Liver function test abnormal [Fatal]
  - Eye swelling [Unknown]
  - Dyskinesia [Unknown]
  - Neuralgia [Unknown]
  - Neoplasm [Unknown]
  - Tonsil cancer [Unknown]
  - Enteral nutrition [Unknown]
  - Secretion discharge [Unknown]
  - Diarrhoea [Unknown]
  - Fatigue [Unknown]
  - Dysphagia [Unknown]
  - Thrombosis [Unknown]
